FAERS Safety Report 19279164 (Version 6)
Quarter: 2021Q2

REPORT INFORMATION
  Report Type: Report from Study
  Country: CA (occurrence: CA)
  Receive Date: 20210520
  Receipt Date: 20210614
  Transmission Date: 20210717
  Serious: Yes (Hospitalization)
  Sender: FDA-Public Use
  Company Number: CA-BEH-2021131885

PATIENT
  Age: 63 Year
  Sex: Male

DRUGS (7)
  1. HIZENTRA [Suspect]
     Active Substance: HUMAN IMMUNOGLOBULIN G
     Indication: CHRONIC INFLAMMATORY DEMYELINATING POLYRADICULONEUROPATHY
     Dosage: 48 GRAM, QW
     Route: 058
     Dates: start: 20210324
  2. HIZENTRA [Suspect]
     Active Substance: HUMAN IMMUNOGLOBULIN G
     Dosage: UNK
     Route: 058
  3. LASIX [Concomitant]
     Active Substance: FUROSEMIDE
  4. NITROGLYCERINE [Concomitant]
     Active Substance: NITROGLYCERIN
  5. HIZENTRA [Suspect]
     Active Substance: HUMAN IMMUNOGLOBULIN G
     Dosage: UNK
     Route: 058
  6. HIZENTRA [Suspect]
     Active Substance: HUMAN IMMUNOGLOBULIN G
     Dosage: UNK
     Route: 058
  7. HIZENTRA [Suspect]
     Active Substance: HUMAN IMMUNOGLOBULIN G
     Dosage: UNK
     Route: 058

REACTIONS (19)
  - Balance disorder [Unknown]
  - Pallor [Unknown]
  - Discomfort [Unknown]
  - Injection site bruising [Unknown]
  - Myocardial infarction [Unknown]
  - Dyspnoea [Unknown]
  - Insomnia [Unknown]
  - Joint swelling [Unknown]
  - Injection site pain [Unknown]
  - Pain in extremity [Unknown]
  - Chest pain [Unknown]
  - Hypotension [Unknown]
  - Weight decreased [Unknown]
  - Nausea [Unknown]
  - Dyspnoea [Unknown]
  - Burning sensation [Unknown]
  - Dizziness [Unknown]
  - Weight increased [Unknown]
  - Orbital swelling [Unknown]

NARRATIVE: CASE EVENT DATE: 202105
